FAERS Safety Report 7907691-9 (Version None)
Quarter: 2011Q4

REPORT INFORMATION
  Report Type: 
  Country: None (occurrence: None)
  Receive Date: 20111110
  Receipt Date: 20111102
  Transmission Date: 20120403
  Serious: Yes (Other)
  Sender: FDA-Public Use
  Company Number: US-PERRIGO-11US009524

PATIENT
  Sex: Male
  Weight: 97.506 kg

DRUGS (6)
  1. CIALIS [Concomitant]
     Indication: OFF LABEL USE
     Dosage: TWICE A WEEK
     Route: 048
     Dates: start: 20010101
  2. PHENYLEPHRINE HCL [Suspect]
     Indication: SLEEP DISORDER
     Dosage: 2 SPRAYS, 1-2 TIMES DAILY; }2 SPRAYS 2X WEEKLY
     Route: 045
     Dates: start: 20111001
  3. PHENYLEPHRINE HCL [Suspect]
     Dosage: 2 SPRAYS, 1-2 TIMES DAILY; }2 SPRAYS 2X WEEKLY
     Route: 045
     Dates: start: 20060101
  4. CLOROX WIPES [Suspect]
     Indication: PRODUCT USED FOR UNKNOWN INDICATION
     Dosage: UNK
  5. UNSPECIFIED ANTI-ANXIETY MEDICATION [Concomitant]
     Indication: ANXIETY
     Dosage: UNK
     Route: 048
  6. CHOLESTEROL MEDICATION [Concomitant]
     Indication: BLOOD CHOLESTEROL INCREASED
     Dosage: UNK
     Route: 048

REACTIONS (4)
  - CELL-MEDIATED IMMUNE DEFICIENCY [None]
  - DEPENDENCE [None]
  - INCORRECT DRUG ADMINISTRATION DURATION [None]
  - OFF LABEL USE [None]
